FAERS Safety Report 9234861 (Version 1)
Quarter: 2013Q2

REPORT INFORMATION
  Report Type: Spontaneous
  Country: US (occurrence: US)
  Receive Date: 20130416
  Receipt Date: 20130416
  Transmission Date: 20140414
  Serious: Yes (Other)
  Sender: FDA-Public Use
  Company Number: US-PFIZER INC-2013115832

PATIENT
  Age: 76 Year
  Sex: Male
  Weight: 104.34 kg

DRUGS (5)
  1. LIPITOR [Suspect]
     Indication: BLOOD CHOLESTEROL INCREASED
     Dosage: 20 MG, DAILY
     Route: 048
     Dates: start: 1993
  2. LIPITOR [Suspect]
     Dosage: 10 MG, DAILY
     Route: 048
  3. WARFARIN [Concomitant]
     Dosage: 5 MG, UNK
  4. OMEPRAZOLE [Concomitant]
     Indication: OESOPHAGEAL DISORDER
     Dosage: UNK
  5. ALLOPURINOL [Concomitant]
     Indication: NEPHROLITHIASIS
     Dosage: UNK

REACTIONS (4)
  - Oesophageal obstruction [Unknown]
  - Dysphagia [Unknown]
  - Fatigue [Unknown]
  - Prostate cancer [Unknown]
